FAERS Safety Report 16668824 (Version 4)
Quarter: 2019Q3

REPORT INFORMATION
  Report Type: Spontaneous
  Country: US (occurrence: US)
  Receive Date: 20190805
  Receipt Date: 20190826
  Transmission Date: 20191004
  Serious: No
  Sender: FDA-Public Use
  Company Number: US-ACTELION-A-US2019-193878

PATIENT
  Age: 1 Year
  Sex: Male
  Weight: 6.8 kg

DRUGS (3)
  1. TRACLEER [Suspect]
     Active Substance: BOSENTAN
     Indication: PULMONARY ARTERIAL HYPERTENSION
     Dosage: 32 MG, BID
     Route: 048
  2. REMODULIN [Concomitant]
     Active Substance: TREPROSTINIL
  3. SILDENAFIL CITRATE. [Concomitant]
     Active Substance: SILDENAFIL CITRATE

REACTIONS (6)
  - Cough [Unknown]
  - Crying [Unknown]
  - Throat tightness [Unknown]
  - Constipation [Unknown]
  - Administration site pain [Unknown]
  - Skin laceration [Unknown]

NARRATIVE: CASE EVENT DATE: 20190727
